FAERS Safety Report 6218208-1 (Version None)
Quarter: 2009Q2

REPORT INFORMATION
  Report Type: 
  Country: None (occurrence: None)
  Receive Date: 20090608
  Receipt Date: 20090603
  Transmission Date: 20091009
  Serious: Yes (Death)
  Sender: FDA-Public Use
  Company Number: CA-RB-016453-09

PATIENT
  Age: 72 Year
  Sex: Male

DRUGS (1)
  1. SUBUTEX [Suspect]
     Route: 060
     Dates: start: 20020202, end: 20090205

REACTIONS (1)
  - PNEUMONIA [None]
